FAERS Safety Report 6027098-1 (Version None)
Quarter: 2009Q1

REPORT INFORMATION
  Report Type: 
  Country: None (occurrence: None)
  Receive Date: 20090105
  Receipt Date: 20081229
  Transmission Date: 20090719
  Serious: Yes (Hospitalization)
  Sender: FDA-Public Use
  Company Number: US-JNJFOC-20081206849

PATIENT
  Sex: Female
  Weight: 55.79 kg

DRUGS (10)
  1. REMICADE [Suspect]
     Indication: SARCOIDOSIS
     Route: 042
  2. IMURAN [Concomitant]
     Indication: SARCOIDOSIS
  3. PREDNISONE TAB [Concomitant]
     Indication: SARCOIDOSIS
  4. ALBUTEROL [Concomitant]
     Indication: DYSPNOEA
     Dosage: 3-4 TIMES DAILY FOR BREATHING
     Route: 055
  5. XOPENEX [Concomitant]
     Indication: DYSPNOEA
     Route: 055
  6. NORCO [Concomitant]
     Indication: PAIN
  7. FLEXERIL [Concomitant]
     Indication: MUSCLE RELAXANT THERAPY
  8. NEURONTIN [Concomitant]
     Indication: MIGRAINE
  9. MAXALT [Concomitant]
     Indication: MIGRAINE
  10. MOTRIN [Concomitant]
     Indication: PAIN

REACTIONS (5)
  - ARTHRALGIA [None]
  - BLINDNESS [None]
  - JOINT STIFFNESS [None]
  - PAIN IN JAW [None]
  - PARALYSIS [None]
